FAERS Safety Report 15210162 (Version 2)
Quarter: 2018Q4

REPORT INFORMATION
  Report Type: Spontaneous
  Country: US (occurrence: US)
  Receive Date: 20180727
  Receipt Date: 20181109
  Transmission Date: 20190204
  Serious: Yes (Hospitalization, Other)
  Sender: FDA-Public Use
  Company Number: US-009507513-1807USA010635

PATIENT
  Sex: Male

DRUGS (1)
  1. KEYTRUDA [Suspect]
     Active Substance: PEMBROLIZUMAB
     Dosage: 200 MILLIGRAM
     Route: 042
     Dates: start: 20180713, end: 20180827

REACTIONS (3)
  - Adverse event [Unknown]
  - Malignant neoplasm progression [Unknown]
  - Confusional state [Unknown]

NARRATIVE: CASE EVENT DATE: 2018
